FAERS Safety Report 24173233 (Version 1)
Quarter: 2024Q3

REPORT INFORMATION
  Report Type: Spontaneous
  Country: US (occurrence: US)
  Receive Date: 20240805
  Receipt Date: 20240805
  Transmission Date: 20241016
  Serious: No
  Sender: SANOFI AVENTIS
  Company Number: US-SANOFI-02157823

PATIENT
  Sex: Female

DRUGS (1)
  1. DUPIXENT [Suspect]
     Active Substance: DUPILUMAB
     Indication: Eosinophilic oesophagitis
     Dosage: UNK (WILL TAKE IT AS PRESCRIBED FOR A FEW WEEKS, THEN SHE WOULD TAKE IT INTERMITTENTLY FOR A FEW WEE
     Dates: start: 202301

REACTIONS (3)
  - Urticaria [Unknown]
  - Rash [Unknown]
  - Inappropriate schedule of product administration [Unknown]
